FAERS Safety Report 5566454-2 (Version None)
Quarter: 2007Q4

REPORT INFORMATION
  Report Type: 
  Country: None (occurrence: None)
  Receive Date: 20071219
  Receipt Date: 20071214
  Transmission Date: 20080405
  Serious: Yes (Other)
  Sender: FDA-Public Use
  Company Number: US-ASTRAZENECA-2007UW24233

PATIENT
  Age: 42 Year
  Sex: Female

DRUGS (6)
  1. LISINOPRIL [Suspect]
     Route: 048
  2. METFORMIN HCL [Concomitant]
  3. NOVOFINE [Concomitant]
  4. ALBUTEROL HFA INHALER [Concomitant]
  5. OMEPRAZOLE [Concomitant]
  6. INSULIN [Concomitant]

REACTIONS (1)
  - BLOOD GLUCOSE INCREASED [None]
